FAERS Safety Report 11906393 (Version 1)
Quarter: 2016Q1

REPORT INFORMATION
  Report Type: Spontaneous
  Country: US (occurrence: US)
  Receive Date: 20160111
  Receipt Date: 20160111
  Transmission Date: 20160526
  Serious: No
  Sender: FDA-Public Use
  Company Number: US-PFIZER INC-2015445346

PATIENT
  Age: 68 Year
  Sex: Female
  Weight: 74 kg

DRUGS (6)
  1. IBRANCE [Suspect]
     Active Substance: PALBOCICLIB
     Indication: BREAST CANCER METASTATIC
     Dosage: 125 MG, UNK
     Dates: start: 20150506
  2. IBRANCE [Suspect]
     Active Substance: PALBOCICLIB
     Dosage: 125 MG, DAILY
     Route: 048
     Dates: start: 20150511
  3. GLIMEPIRIDE. [Concomitant]
     Active Substance: GLIMEPIRIDE
     Dosage: 1 MG, DAILY
     Route: 048
  4. LETROZOLE. [Suspect]
     Active Substance: LETROZOLE
     Indication: BREAST CANCER METASTATIC
     Dosage: UNK
     Dates: start: 201308
  5. PAXIL [Concomitant]
     Active Substance: PAROXETINE HYDROCHLORIDE
     Dosage: 10 MG, DAILY
     Route: 048
  6. VITAMIN D3 [Concomitant]
     Active Substance: CHOLECALCIFEROL
     Dosage: 5000 IU, WEEKLY
     Route: 048
     Dates: start: 20150224

REACTIONS (12)
  - Anxiety [Unknown]
  - Pain [Not Recovered/Not Resolved]
  - Dyspnoea [Unknown]
  - Cough [Recovered/Resolved]
  - Depression [Unknown]
  - Vertigo [Unknown]
  - Presyncope [Unknown]
  - Dizziness [Recovered/Resolved]
  - Vision blurred [Unknown]
  - Fatigue [Unknown]
  - Joint stiffness [Unknown]
  - Headache [Unknown]
